FAERS Safety Report 14263147 (Version 3)
Quarter: 2017Q4

REPORT INFORMATION
  Report Type: Spontaneous
  Country: JP (occurrence: JP)
  Receive Date: 20171208
  Receipt Date: 20171219
  Transmission Date: 20180321
  Serious: Yes (Other)
  Sender: FDA-Public Use
  Company Number: JP-JNJFOC-20171113907

PATIENT
  Age: 36 Year
  Sex: Female

DRUGS (4)
  1. FENTANYL. [Suspect]
     Active Substance: FENTANYL
     Indication: PAIN
     Route: 062
     Dates: start: 20170407, end: 20171108
  2. MEIACT [Concomitant]
     Active Substance: CEFDITOREN PIVOXIL
     Indication: NASOPHARYNGITIS
     Route: 048
     Dates: start: 20171104
  3. TRANSAMIN [Concomitant]
     Active Substance: TRANEXAMIC ACID
     Indication: NASOPHARYNGITIS
     Route: 065
     Dates: start: 20171104
  4. SINGULAIR [Interacting]
     Active Substance: MONTELUKAST SODIUM
     Indication: NASOPHARYNGITIS
     Route: 048
     Dates: start: 20171104, end: 20171108

REACTIONS (4)
  - Rhabdomyolysis [Recovered/Resolved]
  - Akathisia [Recovered/Resolved]
  - Nasopharyngitis [Recovered/Resolved]
  - Drug interaction [Recovered/Resolved]

NARRATIVE: CASE EVENT DATE: 20171104
